FAERS Safety Report 21712606 (Version 3)
Quarter: 2023Q4

REPORT INFORMATION
  Report Type: Report from Study
  Country: CA (occurrence: CA)
  Receive Date: 20221212
  Receipt Date: 20231010
  Transmission Date: 20240110
  Serious: Yes (Other)
  Sender: FDA-Public Use
  Company Number: CA-JNJFOC-20220340212

PATIENT
  Age: 46 Year
  Sex: Female
  Weight: 72 kg

DRUGS (2)
  1. STELARA [Suspect]
     Active Substance: USTEKINUMAB
     Indication: Crohn^s disease
     Dosage: EXPIRATION DATE: 31-OCT-2024, 28-FEB-2025
     Route: 058
     Dates: start: 20220120
  2. STELARA [Suspect]
     Active Substance: USTEKINUMAB
     Route: 058

REACTIONS (9)
  - Colonic abscess [Unknown]
  - Anal abscess [Unknown]
  - Drain placement [Unknown]
  - Abscess oral [Recovering/Resolving]
  - Induration [Unknown]
  - Anal fistula [Recovering/Resolving]
  - Oedema peripheral [Not Recovered/Not Resolved]
  - Blepharospasm [Not Recovered/Not Resolved]
  - General physical condition abnormal [Unknown]

NARRATIVE: CASE EVENT DATE: 20220101
